FAERS Safety Report 7943374-7 (Version None)
Quarter: 2011Q4

REPORT INFORMATION
  Report Type: 
  Country: None (occurrence: None)
  Receive Date: 20111128
  Receipt Date: 20110119
  Transmission Date: 20120403
  Serious: No
  Sender: FDA-Public Use
  Company Number: US-COVIDIEN/TYCO HEALTHCARE/MALLINCKRODT-T201100061

PATIENT
  Sex: Female

DRUGS (3)
  1. ULTRA-TECHNEKOW [Suspect]
     Indication: SCAN THYROID GLAND
     Dosage: 20.6 MCI, SINGLE
     Dates: start: 20101229, end: 20101229
  2. SODIUM IODIDE I 131 [Suspect]
     Indication: IODINE UPTAKE
     Dosage: 19.6 ?CI, SINGLE
     Route: 048
     Dates: start: 20101228, end: 20101228
  3. TOPROL-XL [Concomitant]

REACTIONS (4)
  - CYANOSIS [None]
  - HYPERSENSITIVITY [None]
  - HYPOAESTHESIA [None]
  - RASH MACULAR [None]
